FAERS Safety Report 18588408 (Version 1)
Quarter: 2020Q4

REPORT INFORMATION
  Report Type: Spontaneous
  Country: US (occurrence: US)
  Receive Date: 20201207
  Receipt Date: 20201207
  Transmission Date: 20210114
  Serious: No
  Sender: FDA-Public Use
  Company Number: US-SIGMAPHARM LABORATORIES, LLC-2020SIG00042

PATIENT
  Sex: Female
  Weight: 87.98 kg

DRUGS (1)
  1. LIOTHYRONINE SODIUM TABLETS USP 5 MCG [Suspect]
     Active Substance: LIOTHYRONINE SODIUM
     Indication: THYROID DISORDER
     Dosage: 5 MCG, 2X/DAY
     Route: 048
     Dates: start: 20200218, end: 2020

REACTIONS (2)
  - Gluten sensitivity [Not Recovered/Not Resolved]
  - Diarrhoea [Not Recovered/Not Resolved]

NARRATIVE: CASE EVENT DATE: 2020
